FAERS Safety Report 17086639 (Version 1)
Quarter: 2019Q4

REPORT INFORMATION
  Report Type: Spontaneous
  Country: US (occurrence: US)
  Receive Date: 20191031
  Receipt Date: 20191031
  Transmission Date: 20200122
  Serious: Yes (Hospitalization)
  Sender: FDA-Public Use
  Company Number: None

PATIENT
  Age: 37 Year
  Sex: Male
  Weight: 91.63 kg

DRUGS (1)
  1. TRAZODONE [Suspect]
     Active Substance: TRAZODONE HYDROCHLORIDE
     Indication: DEPRESSION
     Dosage: ?          OTHER FREQUENCY:AT BEDTIME;?
     Route: 048
     Dates: start: 20191025, end: 20191027

REACTIONS (1)
  - Priapism [None]

NARRATIVE: CASE EVENT DATE: 20191025
